FAERS Safety Report 7355090-3 (Version None)
Quarter: 2011Q1

REPORT INFORMATION
  Report Type: 
  Country: None (occurrence: None)
  Receive Date: 20110316
  Receipt Date: 20110308
  Transmission Date: 20110831
  Serious: Yes (Hospitalization)
  Sender: FDA-Public Use
  Company Number: SE-TEVA-270795ISR

PATIENT
  Sex: Female

DRUGS (5)
  1. METOCLOPRAMIDE HCL [Concomitant]
  2. DOXYCYCLINE [Suspect]
     Indication: INFECTION
     Route: 048
     Dates: start: 20110105, end: 20110115
  3. OXAZEPAM [Concomitant]
  4. CANDESARTAN CILEXETIL [Concomitant]
  5. ACETYLSALICYLIC ACID [Concomitant]

REACTIONS (2)
  - HEADACHE [None]
  - DIZZINESS [None]
